FAERS Safety Report 9474798 (Version 1)
Quarter: 2013Q3

REPORT INFORMATION
  Report Type: Report from Study
  Country: US (occurrence: US)
  Receive Date: 20130823
  Receipt Date: 20130823
  Transmission Date: 20140515
  Serious: Yes (Hospitalization, Other)
  Sender: FDA-Public Use
  Company Number: US-US-EMD SERONO, INC.-7231859

PATIENT
  Age: 11 Year
  Sex: Male
  Weight: 44 kg

DRUGS (2)
  1. SAIZEN [(SOMATROPIN (RDNA ORIGIN) FOR INJECTION)] [Suspect]
     Indication: GROWTH HORMONE DEFICIENCY
     Route: 058
     Dates: start: 20090715
  2. SAIZEN [(SOMATROPIN (RDNA ORIGIN) FOR INJECTION)] [Suspect]
     Indication: DWARFISM
     Route: 058

REACTIONS (7)
  - Appendix disorder [Recovered/Resolved]
  - Petit mal epilepsy [Unknown]
  - Grand mal convulsion [Unknown]
  - Precocious puberty [Not Recovered/Not Resolved]
  - Attention deficit/hyperactivity disorder [Unknown]
  - Hypertension [Unknown]
  - Hypothyroidism [Unknown]
